FAERS Safety Report 9261478 (Version 2)
Quarter: 2013Q3

REPORT INFORMATION
  Report Type: Spontaneous
  Country: BR (occurrence: BR)
  Receive Date: 20130429
  Receipt Date: 20130802
  Transmission Date: 20140515
  Serious: Yes (Hospitalization)
  Sender: FDA-Public Use
  Company Number: BR-ASTRAZENECA-2013SE26514

PATIENT
  Age: 75 Year
  Sex: Female

DRUGS (2)
  1. OMEPRAZOLE [Suspect]
     Indication: GASTRITIS
     Route: 048
     Dates: start: 2012
  2. ENALAPRIL [Suspect]
     Indication: PULMONARY ARTERIAL HYPERTENSION
     Route: 065

REACTIONS (7)
  - Bradycardia [Unknown]
  - Hypotension [Unknown]
  - Gastritis [Unknown]
  - Labyrinthitis [Unknown]
  - Dizziness [Unknown]
  - Oral candidiasis [Not Recovered/Not Resolved]
  - Drug ineffective [Unknown]
